FAERS Safety Report 26088908 (Version 2)
Quarter: 2025Q4

REPORT INFORMATION
  Report Type: Report from Study
  Country: BR (occurrence: BR)
  Receive Date: 20251125
  Receipt Date: 20251211
  Transmission Date: 20260118
  Serious: No
  Sender: BIOGEN
  Company Number: BR-BIOGEN-2092029

PATIENT
  Age: 25 Year
  Sex: Female
  Weight: 68 kg

DRUGS (1)
  1. TYSABRI [Suspect]
     Active Substance: NATALIZUMAB
     Indication: Multiple sclerosis
     Dosage: 300 MG/15 ML
     Dates: start: 20240827, end: 202503

REACTIONS (1)
  - Maternal exposure during pregnancy [Recovered/Resolved]

NARRATIVE: CASE EVENT DATE: 20250201
